FAERS Safety Report 21798716 (Version 1)
Quarter: 2022Q4

REPORT INFORMATION
  Report Type: Report from Study
  Country: US (occurrence: US)
  Receive Date: 20221230
  Receipt Date: 20221230
  Transmission Date: 20230112
  Serious: Yes (Other)
  Sender: FDA-Public Use
  Company Number: US-AMGEN-USASL2022154368

PATIENT
  Age: 81 Year
  Sex: Female

DRUGS (1)
  1. OTEZLA [Suspect]
     Active Substance: APREMILAST
     Indication: Psoriasis
     Dosage: 30 MILLIGRAM, BID
     Route: 065
     Dates: start: 20220823

REACTIONS (11)
  - Hypothyroidism [Unknown]
  - Dyspepsia [Unknown]
  - Abdominal discomfort [Unknown]
  - Nausea [Unknown]
  - Peripheral swelling [Unknown]
  - Fall [Unknown]
  - Contusion [Unknown]
  - Balance disorder [Unknown]
  - Visual impairment [Unknown]
  - Hypoacusis [Unknown]
  - Erythema [Unknown]

NARRATIVE: CASE EVENT DATE: 20220101
